FAERS Safety Report 18212337 (Version 1)
Quarter: 2020Q3

REPORT INFORMATION
  Report Type: Spontaneous
  Country: US (occurrence: US)
  Receive Date: 20200828
  Receipt Date: 20200828
  Transmission Date: 20201103
  Serious: Yes (Hospitalization)
  Sender: FDA-Public Use
  Company Number: None

PATIENT
  Age: 8 Month
  Sex: Female
  Weight: 6.9 kg

DRUGS (1)
  1. PEDIA?LAX [Suspect]
     Active Substance: SODIUM PHOSPHATE, DIBASIC, HEPTAHYDRATE\SODIUM PHOSPHATE, MONOBASIC

REACTIONS (4)
  - Hyperphosphataemia [None]
  - Seizure [None]
  - Off label use [None]
  - Hypocalcaemia [None]

NARRATIVE: CASE EVENT DATE: 20200826
